FAERS Safety Report 16913272 (Version 2)
Quarter: 2019Q4

REPORT INFORMATION
  Report Type: Report from Study
  Country: US (occurrence: US)
  Receive Date: 20191014
  Receipt Date: 20191113
  Transmission Date: 20200122
  Serious: Yes (Other)
  Sender: FDA-Public Use
  Company Number: US-JNJFOC-20190528540

PATIENT
  Sex: Female

DRUGS (3)
  1. BIOTIN [Concomitant]
     Active Substance: BIOTIN
  2. IMBRUVICA [Suspect]
     Active Substance: IBRUTINIB
     Indication: LYMPHOCYTIC LEUKAEMIA
     Route: 048
     Dates: start: 20190513
  3. IMBRUVICA [Suspect]
     Active Substance: IBRUTINIB
     Route: 048
     Dates: start: 20190515

REACTIONS (16)
  - Onychomadesis [Not Recovered/Not Resolved]
  - Rash macular [Unknown]
  - Heart rate irregular [Unknown]
  - Cataract [Not Recovered/Not Resolved]
  - Weight increased [Unknown]
  - Bone pain [Unknown]
  - Muscle spasms [Unknown]
  - Contusion [Unknown]
  - Energy increased [Unknown]
  - Cardiac flutter [Not Recovered/Not Resolved]
  - Dizziness [Unknown]
  - Nausea [Recovering/Resolving]
  - Joint swelling [Unknown]
  - Abdominal pain [Unknown]
  - Pruritus [Not Recovered/Not Resolved]
  - Arthralgia [Unknown]
